FAERS Safety Report 5209941-9 (Version None)
Quarter: 2006Q4

REPORT INFORMATION
  Report Type: 
  Country: None (occurrence: None)
  Receive Date: 20061129
  Receipt Date: 20040413
  Transmission Date: 20070319
  Serious: Yes (Hospitalization)
  Sender: FDA-Public Use
  Company Number: 2004UW05096

PATIENT
  Age: 60 Year
  Sex: Male

DRUGS (10)
  1. ZESTORETIC [Suspect]
     Dosage: 10/12.5 MG
  2. CRESTOR [Suspect]
     Indication: HYPERLIPIDAEMIA
     Dosage: 10 MG QD PO
     Route: 048
     Dates: start: 20040127
  3. SOMA [Concomitant]
  4. QUININE [Concomitant]
  5. XANAX [Concomitant]
  6. AMBIEN [Concomitant]
  7. FISH OIL [Concomitant]
  8. UNSPECIFIED BETA BLOCKERS [Concomitant]
  9. VERAPAMIL [Concomitant]
  10. NIACIN [Concomitant]

REACTIONS (1)
  - PANCREATITIS ACUTE [None]
